FAERS Safety Report 21360099 (Version 1)
Quarter: 2022Q3

REPORT INFORMATION
  Report Type: Spontaneous
  Country: US (occurrence: None)
  Receive Date: 20220920
  Receipt Date: 20220920
  Transmission Date: 20221026
  Serious: No
  Sender: FDA-Public Use
  Company Number: None

PATIENT
  Sex: Female

DRUGS (1)
  1. PROLIA [Suspect]
     Active Substance: DENOSUMAB
     Indication: Osteoporosis
     Dosage: 60MG : EVERY 6 MONTHS SUBCUTANEOUS?
     Route: 058
     Dates: start: 20220317

REACTIONS (5)
  - COVID-19 [None]
  - Renal failure [None]
  - Lung disorder [None]
  - Asthenia [None]
  - Dyspnoea [None]
